FAERS Safety Report 5285685-2 (Version None)
Quarter: 2007Q1

REPORT INFORMATION
  Report Type: 
  Country: None (occurrence: None)
  Receive Date: 20070126
  Receipt Date: 20060111
  Transmission Date: 20070707
  Serious: No
  Sender: FDA-Public Use
  Company Number: 2006CT001163

PATIENT
  Age: 49 Year
  Sex: Female
  Weight: 145 kg

DRUGS (24)
  1. VENTAVIS [Suspect]
     Indication: PULMONARY HYPERTENSION
     Dosage: 5 UG;3-4X;INH
     Route: 055
     Dates: start: 20060111, end: 20060111
  2. AMIODARONE HCL [Concomitant]
  3. BACLOFEN [Concomitant]
  4. COLACE [Concomitant]
  5. CYMBALTA [Concomitant]
  6. DIGOXIN [Concomitant]
  7. DURAGESIC-100 [Concomitant]
  8. FLUCONAZOLE [Concomitant]
  9. K-DUR 10 [Concomitant]
  10. LASIX [Concomitant]
  11. MULTIVITAMINS PLUS IRON [Concomitant]
  12. PERCOCET [Concomitant]
  13. PREDNISONE [Concomitant]
  14. PRILOSEC [Concomitant]
  15. PROCARDIA XL [Concomitant]
  16. PROZAC [Concomitant]
  17. TOPROL-XL [Concomitant]
  18. TYLENOL [Concomitant]
  19. SILDENAFIL CITRATE [Concomitant]
  20. VITAMIN E [Concomitant]
  21. ZAROXOLYN [Concomitant]
  22. ZESTRIL [Concomitant]
  23. REMODULIN [Concomitant]
  24. WARFARIN SODIUM [Concomitant]

REACTIONS (2)
  - DYSPNOEA [None]
  - FLUID RETENTION [None]
